FAERS Safety Report 9302301 (Version 3)
Quarter: 2013Q4

REPORT INFORMATION
  Report Type: Spontaneous
  Country: JP (occurrence: JP)
  Receive Date: 20130522
  Receipt Date: 20131001
  Transmission Date: 20140711
  Serious: Yes (Other)
  Sender: FDA-Public Use
  Company Number: JP-009507513-1305JPN011973

PATIENT
  Sex: 0

DRUGS (4)
  1. BRIDION INTRAVENOUS 200MG [Suspect]
     Dosage: UNK
     Route: 042
     Dates: start: 20130517, end: 20130517
  2. MERCAZOLE [Concomitant]
     Indication: HYPERTHYROIDISM
     Dosage: FORMULATION :POR
     Route: 048
  3. PERDIPINE [Concomitant]
     Indication: PROCEDURAL HYPERTENSION
  4. ESLAX [Concomitant]
     Dosage: UNK
     Route: 042
     Dates: start: 20130517, end: 20130517

REACTIONS (2)
  - Musculoskeletal stiffness [Recovered/Resolved]
  - Respiratory arrest [Recovered/Resolved]
